FAERS Safety Report 25232575 (Version 1)
Quarter: 2025Q2

REPORT INFORMATION
  Report Type: Spontaneous
  Country: US (occurrence: US)
  Receive Date: 20250424
  Receipt Date: 20250424
  Transmission Date: 20250716
  Serious: Yes (Death, Life-Threatening, Hospitalization)
  Sender: ACCORD
  Company Number: US-Accord-480417

PATIENT
  Age: 35 Year
  Sex: Male

DRUGS (3)
  1. METHOTREXATE [Suspect]
     Active Substance: METHOTREXATE
     Indication: Central nervous system lymphoma
  2. RITUXIMAB [Suspect]
     Active Substance: RITUXIMAB
     Indication: Central nervous system lymphoma
  3. BICTEGRAVIR, EEMTRICITABIN, TENOFOVIR [Concomitant]
     Indication: HIV infection

REACTIONS (5)
  - Cytomegalovirus viraemia [Fatal]
  - Hyponatraemia [Fatal]
  - Cytomegalovirus chorioretinitis [Fatal]
  - Encephalitis cytomegalovirus [Fatal]
  - Pancytopenia [Fatal]
